FAERS Safety Report 25299927 (Version 3)
Quarter: 2025Q2

REPORT INFORMATION
  Report Type: Spontaneous
  Country: US (occurrence: US)
  Receive Date: 20250512
  Receipt Date: 20250623
  Transmission Date: 20250716
  Serious: No
  Sender: TRAVERE THERAPEUTICS
  Company Number: US-TRAVERE-2025TVT00554

PATIENT
  Age: 25 Year
  Sex: Female

DRUGS (3)
  1. FILSPARI [Suspect]
     Active Substance: SPARSENTAN
     Indication: IgA nephropathy
     Route: 048
     Dates: start: 20250410, end: 20250414
  2. JARDIANCE [Concomitant]
     Active Substance: EMPAGLIFLOZIN
  3. KERENDIA [Concomitant]
     Active Substance: FINERENONE

REACTIONS (1)
  - Alanine aminotransferase increased [Unknown]
